FAERS Safety Report 7925922-6 (Version None)
Quarter: 2011Q4

REPORT INFORMATION
  Report Type: 
  Country: None (occurrence: None)
  Receive Date: 20111118
  Receipt Date: 20110414
  Transmission Date: 20120403
  Serious: No
  Sender: FDA-Public Use
  Company Number: US-AMGEN-USASP2011019936

PATIENT
  Age: 51 Year
  Sex: Female
  Weight: 79.365 kg

DRUGS (13)
  1. FISH OIL [Concomitant]
  2. VIVELLE-DOT [Concomitant]
     Dosage: 0.025 MG, UNK
  3. ACID REDUCER [Concomitant]
     Dosage: 10 MG, UNK
  4. ENBREL [Suspect]
     Indication: PRODUCT USED FOR UNKNOWN INDICATION
     Dosage: 50 MG, QWK
     Route: 058
  5. XANAX [Concomitant]
     Dosage: 0.5 MG, UNK
  6. TRIAMTEREEN/HYDROCHLOORTHIAZIDE A [Concomitant]
  7. VITAMIN D [Concomitant]
  8. CARVEDILOL [Concomitant]
     Dosage: 12.5 MG, UNK
  9. FOLIC ACID [Concomitant]
     Dosage: 1 MG, UNK
  10. VITAMIN B12                        /00056201/ [Concomitant]
  11. CYMBALTA [Concomitant]
     Dosage: 20 MG, UNK
  12. CENTRUM                            /00554501/ [Concomitant]
  13. METHOTREXATE [Concomitant]
     Dosage: 2.5 MG, UNK

REACTIONS (1)
  - INJECTION SITE PAIN [None]
